FAERS Safety Report 24384493 (Version 6)
Quarter: 2025Q1

REPORT INFORMATION
  Report Type: Spontaneous
  Country: US (occurrence: US)
  Receive Date: 20241001
  Receipt Date: 20250122
  Transmission Date: 20250408
  Serious: No
  Sender: ROCHE
  Company Number: US-ROCHE-10000090367

PATIENT
  Sex: Female

DRUGS (1)
  1. ACTEMRA [Suspect]
     Active Substance: TOCILIZUMAB
     Indication: Arthritis
     Route: 065

REACTIONS (9)
  - Headache [Unknown]
  - Discomfort [Unknown]
  - Syringe issue [Unknown]
  - Underdose [Unknown]
  - Injection site pain [Unknown]
  - Drug ineffective [Unknown]
  - Intercepted product storage error [Unknown]
  - Product quality issue [Unknown]
  - Wrong technique in product usage process [Unknown]
